FAERS Safety Report 14879238 (Version 1)
Quarter: 2018Q2

REPORT INFORMATION
  Report Type: Spontaneous
  Country: HR (occurrence: HR)
  Receive Date: 20180511
  Receipt Date: 20180511
  Transmission Date: 20180711
  Serious: Yes (Other)
  Sender: FDA-Public Use
  Company Number: HR-AMGEN-HRVSP2018063035

PATIENT
  Age: 52 Year
  Sex: Male

DRUGS (4)
  1. FOLINIC ACID [Concomitant]
     Active Substance: LEUCOVORIN
     Indication: COLORECTAL CANCER METASTATIC
     Dosage: UNK UNK, CYCLICAL (8 CYCLES)
  2. VECTIBIX [Suspect]
     Active Substance: PANITUMUMAB
     Indication: COLORECTAL CANCER METASTATIC
     Dosage: UNK UNK, CYCLICAL (8 CYCLES)
     Route: 065
  3. 5 FU [Concomitant]
     Active Substance: FLUOROURACIL
     Indication: COLORECTAL CANCER METASTATIC
     Dosage: UNK UNK, CYCLICAL (8 CYCLES)
  4. IRINOTECAN [Concomitant]
     Active Substance: IRINOTECAN
     Indication: COLORECTAL CANCER METASTATIC
     Dosage: UNK UNK, CYCLICAL (8 CYCLES)

REACTIONS (6)
  - Conjunctivitis [Recovering/Resolving]
  - Malignant neoplasm progression [Unknown]
  - Cancer surgery [Unknown]
  - Skin exfoliation [Recovering/Resolving]
  - Haematochezia [Recovering/Resolving]
  - Haemoptysis [Recovering/Resolving]

NARRATIVE: CASE EVENT DATE: 2018
